FAERS Safety Report 11555155 (Version 1)
Quarter: 2015Q3

REPORT INFORMATION
  Report Type: Spontaneous
  Country: US (occurrence: US)
  Receive Date: 20150903
  Receipt Date: 20150903
  Transmission Date: 20151125
  Serious: No
  Sender: FDA-Public Use
  Company Number: US-ELI_LILLY_AND_COMPANY-US201010001557

PATIENT
  Age: 16 Year
  Sex: Female

DRUGS (2)
  1. HUMALOG [Suspect]
     Active Substance: INSULIN LISPRO
     Indication: DIABETES MELLITUS
     Dosage: UNK, AS NEEDED
     Route: 058
     Dates: start: 20051005
  2. LANTUS [Concomitant]
     Active Substance: INSULIN GLARGINE

REACTIONS (4)
  - Poor quality drug administered [Unknown]
  - Drug ineffective [Unknown]
  - Blood glucose increased [Unknown]
  - Blood ketone body [Unknown]

NARRATIVE: CASE EVENT DATE: 20101005
